FAERS Safety Report 8478582-2 (Version None)
Quarter: 2012Q2

REPORT INFORMATION
  Report Type: 
  Country: None (occurrence: None)
  Receive Date: 20120629
  Receipt Date: 20120618
  Transmission Date: 20120825
  Serious: Yes (Other)
  Sender: FDA-Public Use
  Company Number: ES-CELGENEUS-144-50794-12051879

PATIENT
  Sex: Male

DRUGS (6)
  1. OMEPRAZOLE [Concomitant]
     Route: 065
  2. VIDAZA [Suspect]
     Indication: MYELODYSPLASTIC SYNDROME
     Route: 065
     Dates: start: 20110705
  3. INDOMETHACIN [Concomitant]
     Route: 065
  4. SPIRIVA [Concomitant]
     Route: 065
  5. ACETYLCYSTEINE [Concomitant]
     Route: 065
  6. TRAMADOL HCL [Concomitant]
     Route: 065

REACTIONS (2)
  - GYNAECOMASTIA [None]
  - PAIN [None]
